FAERS Safety Report 15963254 (Version 2)
Quarter: 2019Q1

REPORT INFORMATION
  Report Type: Spontaneous
  Country: CH (occurrence: CH)
  Receive Date: 20190214
  Receipt Date: 20190225
  Transmission Date: 20190417
  Serious: Yes (Hospitalization)
  Sender: FDA-Public Use
  Company Number: CH-MYLANLABS-2019M1014311

PATIENT

DRUGS (28)
  1. DAFALGAN [Concomitant]
     Active Substance: ACETAMINOPHEN
     Dosage: AS NECESSARY
  2. SERTRALINE [Concomitant]
     Active Substance: SERTRALINE HYDROCHLORIDE
     Dosage: UNK
     Dates: start: 20180911, end: 201810
  3. DERMOVATE CAPILAR [Concomitant]
     Dosage: UNK
     Dates: start: 201808
  4. DISTRANEURIN                       /00027501/ [Concomitant]
     Active Substance: CLOMETHIAZOLE
     Indication: INSOMNIA
     Dosage: AS NECESSARY
     Dates: start: 2018
  5. BELOC ZOK [Suspect]
     Active Substance: METOPROLOL SUCCINATE
     Indication: PRODUCT USED FOR UNKNOWN INDICATION
     Dosage: 100 MICROGRAM, Q2D
     Dates: start: 2018
  6. ANXIOLIT [Concomitant]
     Active Substance: OXAZEPAM
     Dosage: UNK
     Dates: end: 20190121
  7. LAXOBERON [Concomitant]
     Active Substance: SODIUM PICOSULFATE
     Dosage: UNK
  8. BELOC                              /00376902/ [Suspect]
     Active Substance: METOPROLOL TARTRATE
     Indication: PRODUCT USED FOR UNKNOWN INDICATION
     Dosage: 50 MILLIGRAM
     Dates: end: 2018
  9. XARELTO [Concomitant]
     Active Substance: RIVAROXABAN
     Dosage: UNK
     Dates: start: 201811
  10. CETIRIZINE [Concomitant]
     Active Substance: CETIRIZINE HYDROCHLORIDE
     Dosage: UNK
     Dates: start: 2018
  11. VITAMIN B12                        /00260201/ [Concomitant]
     Dosage: UNK
     Dates: start: 2018
  12. PREDNISONE. [Concomitant]
     Active Substance: PREDNISONE
     Dosage: 40 MILLIGRAM, QW
     Dates: start: 201808, end: 201808
  13. PHYSIOTENS [Suspect]
     Active Substance: MOXONIDINE
     Indication: PRODUCT USED FOR UNKNOWN INDICATION
     Dosage: 0.2 MILLIGRAM, TID
     Dates: end: 2018
  14. TOREM [Suspect]
     Active Substance: TORSEMIDE
     Indication: PRODUCT USED FOR UNKNOWN INDICATION
     Dosage: 2.5 MILLIGRAM, QD
  15. ESCITALOPRAM [Concomitant]
     Active Substance: ESCITALOPRAM OXALATE
     Dosage: UNK
     Dates: start: 201807, end: 201807
  16. LUVIT D3 [Concomitant]
     Active Substance: CHOLECALCIFEROL
     Dosage: UNK
     Dates: start: 2018
  17. DERMOVATE [Concomitant]
     Active Substance: CLOBETASOL
     Dosage: UNK
     Dates: start: 201808
  18. PHYSIOTENS [Suspect]
     Active Substance: MOXONIDINE
     Dosage: 0.2 MILLIGRAM, TID
     Dates: start: 2018
  19. DEXERYL                            /01579901/ [Concomitant]
     Active Substance: GLYCERIN\MINERAL OIL\PETROLATUM
     Dosage: UNK
     Dates: start: 2018
  20. VI D3 [Concomitant]
     Active Substance: CHOLECALCIFEROL
     Dosage: UNK
     Dates: end: 2018
  21. VOTUM PLUS [Suspect]
     Active Substance: HYDROCHLOROTHIAZIDE\OLMESARTAN MEDOXOMIL
     Indication: PRODUCT USED FOR UNKNOWN INDICATION
     Dosage: 40/25 1X/D
     Dates: end: 20190101
  22. COVERSUM N COMBI [Suspect]
     Active Substance: INDAPAMIDE\PERINDOPRIL ARGININE
     Indication: PRODUCT USED FOR UNKNOWN INDICATION
     Dosage: 1 DOSAGE FORM, QD
     Dates: start: 2018
  23. TEMESTA                            /00273201/ [Concomitant]
     Active Substance: LORAZEPAM
     Dosage: AS NECESSARY
  24. SEROPRAM (CITALOPRAM HYDROBROMIDE) [Concomitant]
     Active Substance: CITALOPRAM HYDROBROMIDE
     Dosage: UNK
     Dates: start: 201811, end: 201811
  25. ACIDUM FOLICUM [Concomitant]
     Active Substance: FOLIC ACID
     Dosage: UNK
     Dates: start: 2018
  26. TORASEMIDE [Concomitant]
     Active Substance: TORSEMIDE
     Dosage: 10 MILLIGRAM, QD
     Route: 048
     Dates: start: 20190118, end: 20190122
  27. SINTROM [Concomitant]
     Active Substance: ACENOCOUMAROL
     Dosage: AS NECESSARY
     Dates: end: 201811
  28. SEROPRAM (CITALOPRAM HYDROBROMIDE) [Concomitant]
     Active Substance: CITALOPRAM HYDROBROMIDE
     Dosage: UNK
     Dates: end: 2018

REACTIONS (1)
  - Rash maculo-papular [Not Recovered/Not Resolved]

NARRATIVE: CASE EVENT DATE: 201805
